FAERS Safety Report 4986465-5 (Version None)
Quarter: 2006Q2

REPORT INFORMATION
  Report Type: 
  Country: None (occurrence: None)
  Receive Date: 20060428
  Receipt Date: 20060130
  Transmission Date: 20061013
  Serious: Yes (Hospitalization)
  Sender: FDA-Public Use
  Company Number: US-ROCHE-434273

PATIENT
  Age: 34 Year
  Sex: Female
  Weight: 77.1 kg

DRUGS (12)
  1. PEG-INTERFERON ALFA 2A (RO 25-8310) [Suspect]
     Route: 058
     Dates: start: 20050826
  2. RIBAVIRIN [Suspect]
     Dosage: GIVEN IN SPLIT DOSES (600 MG IN THE MORNING AND 600 MG IN THE EVENING).
     Route: 048
     Dates: start: 20050826
  3. MOTRIN [Concomitant]
     Dosage: PRN
     Dates: start: 20050826
  4. TYLENOL (CAPLET) [Concomitant]
     Dates: start: 20050826
  5. PHENERGAN HCL [Concomitant]
     Dosage: EVERY 6-8 HOURS WHEN NEEDED.
     Dates: start: 20050903
  6. HYDROCORTISONE CREAM [Concomitant]
     Dosage: ON INJECTION SITE.
     Route: 061
     Dates: start: 20050909
  7. PROCRIT [Concomitant]
     Route: 058
     Dates: start: 20050923
  8. AMLACTIN [Concomitant]
     Indication: RASH
     Route: 061
     Dates: start: 20050923
  9. ATARAX [Concomitant]
     Dates: start: 20050923
  10. EFFEXOR [Concomitant]
     Dates: start: 20051221
  11. LASIX [Concomitant]
     Dates: start: 20060208, end: 20060417
  12. LORATADINE [Concomitant]
     Dates: start: 20060414

REACTIONS (5)
  - DYSPNOEA EXERTIONAL [None]
  - HYPOKALAEMIA [None]
  - HYPOTHYROIDISM [None]
  - PALPITATIONS [None]
  - PERICARDIAL EFFUSION [None]
